FAERS Safety Report 14891288 (Version 1)
Quarter: 2018Q2

REPORT INFORMATION
  Report Type: Spontaneous
  Country: US (occurrence: US)
  Receive Date: 20180514
  Receipt Date: 20180514
  Transmission Date: 20180711
  Serious: No
  Sender: FDA-Public Use
  Company Number: US-009507513-1805USA000576

PATIENT
  Age: 13 Year
  Sex: Male

DRUGS (2)
  1. NOXAFIL [Suspect]
     Active Substance: POSACONAZOLE
     Indication: POST PROCEDURAL COMPLICATION
     Dosage: UNK
     Route: 048
  2. LEVOFLOXACIN. [Concomitant]
     Active Substance: LEVOFLOXACIN
     Indication: POST PROCEDURAL COMPLICATION
     Dosage: UNK

REACTIONS (1)
  - Drug administered to patient of inappropriate age [Unknown]
